FAERS Safety Report 7714474-1 (Version None)
Quarter: 2011Q3

REPORT INFORMATION
  Report Type: 
  Country: None (occurrence: None)
  Receive Date: 20110829
  Receipt Date: 20110817
  Transmission Date: 20111222
  Serious: Yes (Other)
  Sender: FDA-Public Use
  Company Number: BE-JNJFOC-20110707463

PATIENT
  Sex: Male
  Weight: 82 kg

DRUGS (5)
  1. METHOTREXATE [Concomitant]
     Route: 065
  2. STELARA [Suspect]
     Indication: PSORIASIS
     Route: 058
     Dates: start: 20101001
  3. METHOTREXATE [Concomitant]
     Route: 065
  4. STELARA [Suspect]
     Route: 058
     Dates: start: 20110217
  5. METHOTREXATE [Concomitant]
     Route: 065

REACTIONS (4)
  - LYMPHOPENIA [None]
  - B-CELL LYMPHOMA [None]
  - ECZEMA [None]
  - HYPERKERATOSIS [None]
